FAERS Safety Report 12893732 (Version 1)
Quarter: 2016Q4

REPORT INFORMATION
  Report Type: Spontaneous
  Country: US (occurrence: US)
  Receive Date: 20161028
  Receipt Date: 20161028
  Transmission Date: 20170207
  Serious: Yes (Hospitalization)
  Sender: FDA-Public Use
  Company Number: US-ALEXION PHARMACEUTICALS INC.-A201605448

PATIENT

DRUGS (2)
  1. SOLIRIS [Suspect]
     Active Substance: ECULIZUMAB
     Indication: OFF LABEL USE
     Dosage: 900 MG, SINGLE
     Route: 042
     Dates: start: 20160715, end: 20160722
  2. SOLIRIS [Suspect]
     Active Substance: ECULIZUMAB
     Indication: LIVER TRANSPLANT
     Dosage: 1200 MG, SINGLE
     Route: 042
     Dates: start: 20160715, end: 20160722

REACTIONS (2)
  - Infection [Unknown]
  - Off label use [Unknown]
